FAERS Safety Report 4801795-5 (Version None)
Quarter: 2005Q3

REPORT INFORMATION
  Report Type: 
  Country: None (occurrence: None)
  Receive Date: 20050929
  Receipt Date: 20050727
  Transmission Date: 20060218
  Serious: No
  Sender: FDA-Public Use
  Company Number: 05P-163-0306804-00

PATIENT
  Age: 56 Year
  Sex: Female
  Weight: 69.8539 kg

DRUGS (10)
  1. HUMIRA [Suspect]
     Indication: PSORIATIC ARTHROPATHY
     Dosage: 40 MG, 1 IN 2 WK, SUBCUTANEOUS
     Route: 058
     Dates: start: 20050726
  2. ENALAPRIL MALEATE [Concomitant]
  3. DILTIAZEM HYDROCHLORIDE [Concomitant]
  4. ATORVASTATIN CALCIUM [Concomitant]
  5. SALBUTAMOL [Concomitant]
  6. COMBIVENT [Concomitant]
  7. PAROXETINE HYDROCHLORIDE [Concomitant]
  8. ALPRAZOLAM [Concomitant]
  9. FOLIC ACID [Concomitant]
  10. VICODIN [Concomitant]

REACTIONS (2)
  - ACCIDENTAL NEEDLE STICK [None]
  - PROCEDURAL COMPLICATION [None]
